FAERS Safety Report 4634060-X (Version None)
Quarter: 2005Q2

REPORT INFORMATION
  Report Type: 
  Country: None (occurrence: None)
  Receive Date: 20050413
  Receipt Date: 20050224
  Transmission Date: 20051028
  Serious: Yes (Death)
  Sender: FDA-Public Use
  Company Number: JP-ROCHE-397190

PATIENT
  Age: 79 Year
  Sex: Male

DRUGS (4)
  1. TAMIFLU [Suspect]
     Indication: INFLUENZA
     Route: 048
     Dates: start: 20050218
  2. CLARITHROMYCIN [Concomitant]
     Route: 048
     Dates: start: 20050218
  3. BISOLVON [Concomitant]
     Route: 048
     Dates: start: 20050218
  4. BROCIN-CODEINE [Concomitant]
     Route: 048
     Dates: start: 20050218

REACTIONS (7)
  - BLOOD GASES ABNORMAL [None]
  - BLOOD GLUCOSE DECREASED [None]
  - HAEMORRHAGE [None]
  - HEPATITIS FULMINANT [None]
  - LOSS OF CONSCIOUSNESS [None]
  - PLATELET COUNT DECREASED [None]
  - PLEURAL EFFUSION [None]
